FAERS Safety Report 13739697 (Version 1)
Quarter: 2017Q3

REPORT INFORMATION
  Report Type: Spontaneous
  Country: US (occurrence: US)
  Receive Date: 20170710
  Receipt Date: 20170710
  Transmission Date: 20171127
  Serious: Yes (Death)
  Sender: FDA-Public Use
  Company Number: None

PATIENT
  Age: 83 Year
  Sex: Male

DRUGS (18)
  1. SENNA LAXATIVE [Concomitant]
     Active Substance: SENNOSIDES
  2. SIMVASTATIN. [Concomitant]
     Active Substance: SIMVASTATIN
  3. COLACE [Concomitant]
     Active Substance: DOCUSATE SODIUM
  4. COMBIGAN [Concomitant]
     Active Substance: BRIMONIDINE TARTRATE\TIMOLOL MALEATE
  5. MULTI-VITAMIN [Concomitant]
     Active Substance: .ALPHA.-TOCOPHEROL ACETATE, DL-\ASCORBIC ACID\CYANOCOBALAMIN\FLUORIDE ION\FOLIC ACID\NIACIN\PYRIDOXINE\RIBOFLAVIN\THIAMINE\VITAMIN A\VITAMIN D
  6. LUTEIN [Concomitant]
     Active Substance: LUTEIN
  7. MYRBETRIQ [Concomitant]
     Active Substance: MIRABEGRON
  8. ESBRIET [Suspect]
     Active Substance: PIRFENIDONE
     Indication: IDIOPATHIC PULMONARY FIBROSIS
     Route: 048
     Dates: start: 20150825
  9. DORZOLAMIDE [Concomitant]
     Active Substance: DORZOLAMIDE
  10. FISH OIL [Concomitant]
     Active Substance: FISH OIL
  11. FUROSEMIDE. [Concomitant]
     Active Substance: FUROSEMIDE
  12. POTASSIUM [Concomitant]
     Active Substance: POTASSIUM
  13. PREDISONE [Concomitant]
     Active Substance: PREDNISONE
  14. ZETIA [Concomitant]
     Active Substance: EZETIMIBE
  15. ASPIRIN. [Concomitant]
     Active Substance: ASPIRIN
  16. CALCIUM/D3 [Concomitant]
     Active Substance: CALCIUM\CHOLECALCIFEROL
  17. LUMIGAN [Suspect]
     Active Substance: BIMATOPROST
  18. METOPROLOL TARTRATE. [Concomitant]
     Active Substance: METOPROLOL TARTRATE

REACTIONS (1)
  - Death [None]
